FAERS Safety Report 4524844-0 (Version None)
Quarter: 2004Q4

REPORT INFORMATION
  Report Type: 
  Country: None (occurrence: None)
  Receive Date: 20041213
  Receipt Date: 20041201
  Transmission Date: 20050328
  Serious: Yes (Disabling)
  Sender: FDA-Public Use
  Company Number: FR-BRISTOL-MYERS SQUIBB COMPANY-12788691

PATIENT
  Age: 41 Year
  Sex: Male

DRUGS (7)
  1. EFAVIRENZ CAPS [Suspect]
     Indication: HIV INFECTION
     Route: 048
  2. STAVUDINE [Suspect]
     Indication: HIV INFECTION
     Route: 048
  3. LAMIVUDINE [Suspect]
     Indication: HIV INFECTION
     Route: 048
  4. METHYLPREDNISOLONE [Suspect]
     Indication: CENTRAL NERVOUS SYSTEM LYMPHOMA
     Route: 042
     Dates: start: 19970101
  5. INDINAVIR SULFATE [Suspect]
     Indication: HIV INFECTION
     Route: 048
     Dates: start: 19980101, end: 20020101
  6. CARBIMAZOLE [Concomitant]
     Dates: start: 20020201
  7. BISPHOSPHONATES [Concomitant]
     Dates: start: 20020101

REACTIONS (2)
  - BLOOD CHOLESTEROL INCREASED [None]
  - OSTEONECROSIS [None]
